FAERS Safety Report 6158583-X (Version None)
Quarter: 2009Q2

REPORT INFORMATION
  Report Type: 
  Country: None (occurrence: None)
  Receive Date: 20090415
  Receipt Date: 20090330
  Transmission Date: 20091009
  Serious: Yes (Other)
  Sender: FDA-Public Use
  Company Number: 2009S1002637

PATIENT
  Age: 57 Year
  Sex: Male
  Weight: 98.7 kg

DRUGS (6)
  1. AMNESTEEM [Suspect]
     Indication: GLIOBLASTOMA MULTIFORME
     Dosage: 100 MG; EVERY MORNING; ORAL, 120 MG; DAILY; ORAL
     Route: 048
     Dates: start: 20081023, end: 20090201
  2. AMNESTEEM [Suspect]
     Indication: GLIOBLASTOMA MULTIFORME
     Dosage: 100 MG; EVERY MORNING; ORAL, 120 MG; DAILY; ORAL
     Route: 048
     Dates: start: 20081023, end: 20090201
  3. CLARAVIS [Suspect]
     Indication: GLIOBLASTOMA MULTIFORME
     Dosage: ORAL
     Route: 048
     Dates: start: 20081023
  4. CLARAVIS [Suspect]
     Indication: GLIOBLASTOMA MULTIFORME
     Dosage: ORAL
     Route: 048
  5. CLARAVIS [Suspect]
     Indication: GLIOBLASTOMA MULTIFORME
     Dosage: ORAL
     Route: 048
  6. SOTRET [Suspect]
     Indication: GLIOBLASTOMA MULTIFORME
     Dosage: ORAL
     Route: 048

REACTIONS (3)
  - FATIGUE [None]
  - GLIOBLASTOMA MULTIFORME [None]
  - MALIGNANT NEOPLASM PROGRESSION [None]
